FAERS Safety Report 7705138-9 (Version None)
Quarter: 2011Q3

REPORT INFORMATION
  Report Type: 
  Country: None (occurrence: None)
  Receive Date: 20110824
  Receipt Date: 20110815
  Transmission Date: 20111222
  Serious: Yes (Hospitalization)
  Sender: FDA-Public Use
  Company Number: US-BIOGENIDEC-2010BI032158

PATIENT
  Age: 56 Year
  Sex: Female

DRUGS (2)
  1. CHEMOTHERAPY (NOS) [Concomitant]
     Indication: LUNG NEOPLASM MALIGNANT
  2. AVONEX [Suspect]
     Indication: MULTIPLE SCLEROSIS
     Route: 030
     Dates: start: 20071113

REACTIONS (3)
  - PERICARDIAL EFFUSION [None]
  - SCAR [None]
  - PLEURAL EFFUSION [None]
